FAERS Safety Report 4724981-1 (Version None)
Quarter: 2005Q3

REPORT INFORMATION
  Report Type: 
  Country: None (occurrence: None)
  Receive Date: 20050722
  Receipt Date: 20050722
  Transmission Date: 20060218
  Serious: Yes (Hospitalization)
  Sender: FDA-Public Use
  Company Number: None

PATIENT
  Age: 68 Year
  Sex: Male
  Weight: 106.5953 kg

DRUGS (2)
  1. CLOPIDOGREL 75MG [Suspect]
     Indication: POST PROCEDURAL COMPLICATION
     Dosage: 75MG DAILY ORAL
     Route: 048
     Dates: start: 20050623, end: 20050718
  2. CLOPIDOGREL 75MG [Suspect]
     Indication: STENT PLACEMENT
     Dosage: 75MG DAILY ORAL
     Route: 048
     Dates: start: 20050623, end: 20050718

REACTIONS (4)
  - DRUG ERUPTION [None]
  - RASH MORBILLIFORM [None]
  - RASH PRURITIC [None]
  - URTICARIA [None]
